FAERS Safety Report 21328346 (Version 1)
Quarter: 2022Q3

REPORT INFORMATION
  Report Type: Report from Study
  Country: US (occurrence: US)
  Receive Date: 20220913
  Receipt Date: 20220913
  Transmission Date: 20221026
  Serious: Yes (Other)
  Sender: FDA-Public Use
  Company Number: US-ABBVIE-22K-163-4536330-00

PATIENT
  Sex: Male

DRUGS (1)
  1. HUMIRA [Suspect]
     Active Substance: ADALIMUMAB
     Indication: Rheumatoid arthritis
     Route: 058

REACTIONS (6)
  - Rheumatoid nodule [Unknown]
  - Wrist surgery [Unknown]
  - Ankle operation [Unknown]
  - Meniscus operation [Unknown]
  - Leg amputation [Unknown]
  - Infection [Unknown]

NARRATIVE: CASE EVENT DATE: 20210101
